FAERS Safety Report 23827178 (Version 2)
Quarter: 2024Q2

REPORT INFORMATION
  Report Type: Spontaneous
  Country: US (occurrence: US)
  Receive Date: 20240507
  Receipt Date: 20240508
  Transmission Date: 20240715
  Serious: Yes (Hospitalization, Other)
  Sender: FDA-Public Use
  Company Number: US-PFIZER INC-PV202400057958

PATIENT
  Age: 15 Year
  Sex: Female
  Weight: 67.87 kg

DRUGS (7)
  1. AMOXICILLIN [Suspect]
     Active Substance: AMOXICILLIN
     Indication: Sinusitis
     Dosage: UNK
     Route: 048
     Dates: start: 19940604, end: 19940604
  2. AMOXICILLIN [Suspect]
     Active Substance: AMOXICILLIN
     Dosage: UNK
     Route: 048
     Dates: start: 19940604, end: 19950604
  3. AMOXICILLIN [Suspect]
     Active Substance: AMOXICILLIN
     Dosage: 1500 MG, DAILY
     Route: 048
     Dates: start: 19940513
  4. DOXYCYCLINE HYCLATE [Suspect]
     Active Substance: DOXYCYCLINE HYCLATE
     Dosage: UNK
     Dates: start: 19940604, end: 19940604
  5. LEVONORGESTREL [Suspect]
     Active Substance: LEVONORGESTREL
     Indication: Contraception
     Dosage: UNK
     Route: 058
     Dates: start: 19930318
  6. VEETIDS [Suspect]
     Active Substance: PENICILLIN V POTASSIUM
     Dosage: UNK
     Dates: start: 19940604, end: 19940604
  7. OXYCODONE HYDROCHLORIDE\OXYCODONE TEREPHTHALATE [Concomitant]
     Active Substance: OXYCODONE HYDROCHLORIDE\OXYCODONE TEREPHTHALATE
     Dosage: UNK
     Dates: start: 19940513

REACTIONS (10)
  - Intentional self-injury [Unknown]
  - Intentional overdose [Unknown]
  - Personality disorder [Unknown]
  - Loss of consciousness [Unknown]
  - Vomiting [Unknown]
  - Headache [Unknown]
  - Abdominal pain upper [Unknown]
  - Psychogenic pseudosyncope [Unknown]
  - Urine cannabinoids increased [Unknown]
  - Personality change [Unknown]

NARRATIVE: CASE EVENT DATE: 19940101
